FAERS Safety Report 23996720 (Version 1)
Quarter: 2024Q2

REPORT INFORMATION
  Report Type: Spontaneous
  Country: US (occurrence: US)
  Receive Date: 20240620
  Receipt Date: 20240620
  Transmission Date: 20240715
  Serious: Yes (Hospitalization, Other)
  Sender: FDA-Public Use
  Company Number: US-GLAXOSMITHKLINE-US2024GSK074791

PATIENT

DRUGS (1)
  1. BUPROPION [Suspect]
     Active Substance: BUPROPION
     Indication: Product used for unknown indication
     Dosage: UNK

REACTIONS (14)
  - Intentional overdose [Unknown]
  - Suicide attempt [Unknown]
  - Encephalopathy [Recovered/Resolved]
  - Status epilepticus [Recovered/Resolved]
  - Hypotension [Unknown]
  - Pupil fixed [Unknown]
  - Areflexia [Recovering/Resolving]
  - Electrocardiogram QRS complex prolonged [Unknown]
  - Electrocardiogram QT prolonged [Unknown]
  - Metabolic disorder [Unknown]
  - Cytotoxic oedema [Recovered/Resolved]
  - Brain injury [Recovered/Resolved]
  - Cerebral disorder [Recovered/Resolved]
  - Nervous system disorder [Recovered/Resolved]
